FAERS Safety Report 6132187-7 (Version None)
Quarter: 2009Q1

REPORT INFORMATION
  Report Type: 
  Country: None (occurrence: None)
  Receive Date: 20090325
  Receipt Date: 20090320
  Transmission Date: 20090719
  Serious: Yes (Other)
  Sender: FDA-Public Use
  Company Number: B0566487A

PATIENT
  Sex: Male

DRUGS (3)
  1. TELZIR [Suspect]
     Indication: HIV INFECTION
     Route: 048
     Dates: end: 20070626
  2. NORVIR [Suspect]
     Indication: HIV INFECTION
     Route: 048
  3. SUSTIVA [Suspect]
     Indication: HIV INFECTION
     Route: 048

REACTIONS (1)
  - HEPATOTOXICITY [None]
